FAERS Safety Report 18840249 (Version 1)
Quarter: 2021Q1

REPORT INFORMATION
  Report Type: Spontaneous
  Country: US (occurrence: US)
  Receive Date: 20210203
  Receipt Date: 20210203
  Transmission Date: 20210419
  Serious: No
  Sender: FDA-Public Use
  Company Number: US-PRAGMA-2020-US-009334

PATIENT
  Age: 62 Year
  Sex: Female

DRUGS (1)
  1. KEFLEX [Suspect]
     Active Substance: CEPHALEXIN
     Indication: SINUSITIS
     Dosage: UNKNOWN
     Route: 065
     Dates: start: 202003

REACTIONS (1)
  - Drug ineffective [Not Recovered/Not Resolved]
